FAERS Safety Report 9973488 (Version 1)
Quarter: 2014Q1

REPORT INFORMATION
  Report Type: Spontaneous
  Country: US (occurrence: US)
  Receive Date: 20140306
  Receipt Date: 20140306
  Transmission Date: 20141002
  Serious: Yes (Hospitalization, Other)
  Sender: FDA-Public Use
  Company Number: US-PFIZER INC-2014064435

PATIENT
  Age: 49 Year
  Sex: Female
  Weight: 62.59 kg

DRUGS (2)
  1. LYRICA [Suspect]
     Indication: FIBROMYALGIA
     Dosage: UNK, 2X/DAY
     Dates: start: 201301, end: 20140110
  2. LYRICA [Suspect]
     Indication: DIABETIC NEUROPATHY

REACTIONS (4)
  - Suicidal ideation [Not Recovered/Not Resolved]
  - Hepatic failure [Recovering/Resolving]
  - Renal failure [Recovering/Resolving]
  - Depression [Not Recovered/Not Resolved]
